FAERS Safety Report 9194267 (Version 3)
Quarter: 2013Q3

REPORT INFORMATION
  Report Type: Report from Study
  Country: DE (occurrence: DE)
  Receive Date: 20130327
  Receipt Date: 20130725
  Transmission Date: 20140515
  Serious: Yes (Hospitalization)
  Sender: FDA-Public Use
  Company Number: DE-BAXTER-2013BAX003207

PATIENT
  Sex: Female

DRUGS (24)
  1. ENDOXAN 1G [Suspect]
     Indication: B-CELL LYMPHOMA
     Route: 042
     Dates: start: 20130104, end: 20130104
  2. ENDOXAN 1G [Suspect]
     Route: 042
     Dates: start: 20130124, end: 20130124
  3. ENDOXAN 1G [Suspect]
     Route: 042
     Dates: start: 20130212, end: 20130212
  4. RITUXIMAB [Suspect]
     Indication: B-CELL LYMPHOMA
     Route: 042
     Dates: start: 20130103, end: 20130103
  5. RITUXIMAB [Suspect]
     Route: 042
     Dates: start: 20130121, end: 20130121
  6. RITUXIMAB [Suspect]
     Route: 042
     Dates: start: 20130306, end: 20130306
  7. DOXORUBICIN [Suspect]
     Indication: B-CELL LYMPHOMA
     Route: 042
     Dates: start: 20130104, end: 20130104
  8. DOXORUBICIN [Suspect]
     Route: 042
     Dates: start: 20130124, end: 20130124
  9. DOXORUBICIN [Suspect]
     Route: 042
     Dates: start: 20130212, end: 20130212
  10. PEGFILGRASTIM [Suspect]
     Indication: B-CELL LYMPHOMA
     Route: 058
     Dates: start: 20130107, end: 20130107
  11. PEGFILGRASTIM [Suspect]
     Route: 058
     Dates: start: 20130127, end: 20130127
  12. PEGFILGRASTIM [Suspect]
     Route: 058
     Dates: start: 20130216, end: 20130216
  13. VINCRISTINE [Suspect]
     Indication: B-CELL LYMPHOMA
     Route: 042
     Dates: start: 20130109, end: 20130109
  14. VINCRISTINE [Suspect]
     Route: 042
     Dates: start: 20130124, end: 20130124
  15. VINCRISTINE [Suspect]
     Route: 042
     Dates: start: 20130212, end: 20130212
  16. PREDNISONE [Suspect]
     Indication: B-CELL LYMPHOMA
     Route: 065
     Dates: start: 20130104, end: 20130104
  17. PREDNISONE [Suspect]
     Route: 065
     Dates: start: 20130124, end: 20130124
  18. PREDNISONE [Suspect]
     Route: 065
     Dates: start: 20130212, end: 20130212
  19. PANTOPRAZOLE [Concomitant]
     Indication: DYSPEPSIA
     Route: 048
  20. METAMIZOLE SODIUM [Concomitant]
     Indication: PAIN
     Route: 048
  21. METOCLOPRAMIDE [Concomitant]
     Indication: NAUSEA
     Route: 048
  22. ONDANSETRON [Concomitant]
     Indication: NAUSEA
     Route: 048
  23. LACTULOSE [Concomitant]
     Indication: CONSTIPATION
     Route: 048
  24. OXYCODONE [Concomitant]
     Indication: PAIN
     Route: 065
     Dates: start: 20130502

REACTIONS (6)
  - Anaemia [Recovered/Resolved]
  - Thrombocytopenia [Recovering/Resolving]
  - Toxic neuropathy [Not Recovered/Not Resolved]
  - Pancreatitis [Not Recovered/Not Resolved]
  - Vomiting [Not Recovered/Not Resolved]
  - Anaemia [Recovering/Resolving]
